FAERS Safety Report 10230849 (Version 1)
Quarter: 2014Q2

REPORT INFORMATION
  Report Type: Spontaneous
  Country: IT (occurrence: IT)
  Receive Date: 20140611
  Receipt Date: 20140611
  Transmission Date: 20141212
  Serious: Yes (Other)
  Sender: FDA-Public Use
  Company Number: IT-TEVA-486515ISR

PATIENT
  Age: 36 Year
  Sex: Male
  Weight: 74 kg

DRUGS (3)
  1. CISPLATINO TEVA [Suspect]
     Indication: TESTIS CANCER
     Dosage: 38.4 MILLIGRAM DAILY;
     Route: 042
     Dates: start: 20140428, end: 20140523
  2. ETOPOSIDE TEVA [Suspect]
     Indication: TESTIS CANCER
     Dosage: 192 MILLIGRAM DAILY;
     Route: 042
     Dates: start: 20140428, end: 20140523
  3. BLEOPRIM [Suspect]
     Indication: TESTIS CANCER
     Dosage: 30 MILLIGRAM DAILY;
     Route: 042
     Dates: start: 20140428, end: 20140506

REACTIONS (3)
  - Loss of consciousness [Recovered/Resolved]
  - Formication [Recovered/Resolved]
  - Muscle tightness [Recovered/Resolved]
